FAERS Safety Report 9159750 (Version 1)
Quarter: 2013Q1

REPORT INFORMATION
  Report Type: Spontaneous
  Country: NL (occurrence: None)
  Receive Date: 20130219
  Receipt Date: 20130219
  Transmission Date: 20140127
  Serious: Yes (Hospitalization)
  Sender: FDA-Public Use
  Company Number: SYM-2013-00638

PATIENT
  Age: 56 Year
  Sex: Female

DRUGS (3)
  1. ENALAPRIL MALEATE [Suspect]
     Indication: HYPERTENSION
     Route: 048
     Dates: start: 20120124, end: 201210
  2. PANTOPRAZOLE (PANTOPRAZOLE) [Concomitant]
  3. ETHINYL ESTRADIOL (+) LEVONORGESTREL (EUGYNON) (50/125 MICROGRAM TABLET) (ETHINYLESTRADIOL, LEVONORGESTREL) [Concomitant]

REACTIONS (2)
  - Tongue oedema [None]
  - Angioedema [None]
